FAERS Safety Report 19067209 (Version 1)
Quarter: 2021Q1

REPORT INFORMATION
  Report Type: Spontaneous
  Country: US (occurrence: US)
  Receive Date: 20210329
  Receipt Date: 20210329
  Transmission Date: 20210420
  Serious: No
  Sender: FDA-Public Use
  Company Number: US-BAUSCH-BL-2021-007952

PATIENT

DRUGS (1)
  1. BUPROPION XL [Suspect]
     Active Substance: BUPROPION
     Indication: PRODUCT USED FOR UNKNOWN INDICATION
     Route: 065

REACTIONS (9)
  - Ageusia [Unknown]
  - Dysphonia [Unknown]
  - Dry mouth [Unknown]
  - Tongue erythema [Unknown]
  - Sensation of foreign body [Unknown]
  - Dry throat [Unknown]
  - Asthenia [Unknown]
  - Dry eye [Unknown]
  - Swollen tongue [Unknown]
